FAERS Safety Report 20606582 (Version 1)
Quarter: 2022Q1

REPORT INFORMATION
  Report Type: Spontaneous
  Country: US (occurrence: None)
  Receive Date: 20220317
  Receipt Date: 20220317
  Transmission Date: 20220424
  Serious: No
  Sender: FDA-Public Use
  Company Number: 2022A076212

PATIENT
  Age: 21120 Day

DRUGS (2)
  1. BUDESONIDE\FORMOTEROL\GLYCOPYRRONIUM [Suspect]
     Active Substance: BUDESONIDE\FORMOTEROL\GLYCOPYRRONIUM
     Route: 055
  2. OXYGEN [Concomitant]
     Active Substance: OXYGEN

REACTIONS (10)
  - Dyspnoea [Recovering/Resolving]
  - Condition aggravated [Not Recovered/Not Resolved]
  - Fatigue [Unknown]
  - Walking disability [Unknown]
  - Bronchial obstruction [Recovered/Resolved]
  - Insomnia [Unknown]
  - Drug delivery system issue [Unknown]
  - Therapy cessation [Unknown]
  - Underdose [Not Recovered/Not Resolved]
  - Drug ineffective [Not Recovered/Not Resolved]

NARRATIVE: CASE EVENT DATE: 20220104
